FAERS Safety Report 17520447 (Version 1)
Quarter: 2020Q1

REPORT INFORMATION
  Report Type: Report from Study
  Country: JP (occurrence: JP)
  Receive Date: 20200309
  Receipt Date: 20200309
  Transmission Date: 20200409
  Serious: Yes (Other)
  Sender: FDA-Public Use
  Company Number: JP-ACTELION-A-CH2019-194202

PATIENT
  Age: 5 Year
  Sex: Female

DRUGS (15)
  1. ADCIRCA [Concomitant]
     Active Substance: TADALAFIL
  2. ARTIST [Concomitant]
     Active Substance: CARVEDILOL
  3. CAPTORIL [Concomitant]
     Active Substance: CAPTOPRIL
  4. ENALART [Concomitant]
     Active Substance: ENALAPRIL MALEATE
  5. UPTRAVI [Concomitant]
     Active Substance: SELEXIPAG
  6. DIGOSIN [Concomitant]
     Active Substance: DIGOXIN
  7. OPSUMIT [Suspect]
     Active Substance: MACITENTAN
     Indication: PULMONARY ARTERIAL HYPERTENSION
     Dosage: 1.5 MG, QD
     Route: 048
     Dates: start: 20170113, end: 20170207
  8. OPSUMIT [Suspect]
     Active Substance: MACITENTAN
     Dosage: 3 MG, QD
     Route: 048
     Dates: start: 20170208
  9. FUROSEMIDE. [Concomitant]
     Active Substance: FUROSEMIDE
  10. SAMSCA [Concomitant]
     Active Substance: TOLVAPTAN
  11. HEPARIN SODIUM. [Concomitant]
     Active Substance: HEPARIN SODIUM
  12. DORNER [Concomitant]
     Active Substance: BERAPROST SODIUM
  13. ALDACTONE A [Concomitant]
     Active Substance: SPIRONOLACTONE
  14. WARFARIN [Concomitant]
     Active Substance: WARFARIN
  15. OXYGEN. [Concomitant]
     Active Substance: OXYGEN

REACTIONS (3)
  - Upper respiratory tract inflammation [Recovering/Resolving]
  - Pancytopenia [Unknown]
  - Hepatic function abnormal [Recovered/Resolved]

NARRATIVE: CASE EVENT DATE: 20170204
